FAERS Safety Report 21862269 (Version 1)
Quarter: 2023Q1

REPORT INFORMATION
  Report Type: Spontaneous
  Country: US (occurrence: US)
  Receive Date: 20230114
  Receipt Date: 20230114
  Transmission Date: 20230417
  Serious: Yes (Hospitalization)
  Sender: FDA-Public Use
  Company Number: US-STRIDES ARCOLAB LIMITED-2023SP000633

PATIENT
  Sex: Female

DRUGS (7)
  1. TRAMADOL [Suspect]
     Active Substance: TRAMADOL
     Indication: Back pain
     Dosage: 50 MILLIGRAM, DAILY
     Route: 065
  2. TRAMADOL [Suspect]
     Active Substance: TRAMADOL
     Dosage: UNK,5000-6000 MG DAILY
     Route: 065
  3. TRAMADOL [Suspect]
     Active Substance: TRAMADOL
     Dosage: 4000 MILLIGRAM, DAILY
     Route: 065
  4. TRAMADOL [Suspect]
     Active Substance: TRAMADOL
     Dosage: UNK, INDEPENDENTLY TRIED NUMEROUS TIMES TO QUIT BY TAPERING   BUT WAS LIMITED BY INTOLERABLE WITHDRA
     Route: 065
  5. TRAMADOL [Suspect]
     Active Substance: TRAMADOL
     Dosage: 4000 MILLIGRAM, PER DAY
     Route: 065
  6. TRAMADOL [Suspect]
     Active Substance: TRAMADOL
     Dosage: UNK,5000-6000 MG DAILY
     Route: 065
  7. TRAMADOL [Suspect]
     Active Substance: TRAMADOL
     Dosage: UNK, RESUMED
     Route: 065

REACTIONS (10)
  - Memory impairment [Unknown]
  - Arthralgia [Recovered/Resolved]
  - Hyperhidrosis [Recovered/Resolved]
  - Sedation complication [Unknown]
  - Seizure [Unknown]
  - Withdrawal syndrome [Recovered/Resolved]
  - Anxiety [Unknown]
  - Restlessness [Recovered/Resolved]
  - Insomnia [Unknown]
  - Intentional product misuse [Unknown]
